FAERS Safety Report 6897342-7 (Version None)
Quarter: 2010Q3

REPORT INFORMATION
  Report Type: 
  Country: None (occurrence: None)
  Receive Date: 20100729
  Receipt Date: 20100714
  Transmission Date: 20110219
  Serious: Yes (Hospitalization)
  Sender: FDA-Public Use
  Company Number: 2010RR-35055

PATIENT
  Age: 35 Year
  Sex: Female

DRUGS (4)
  1. FLUOXETINE [Suspect]
     Dosage: 60 MG, 80 MG
  2. ACUPHASE (ZUCLOPENTHIXOL) [Suspect]
     Dosage: 100 MG, INTRAMUSCULAR
     Route: 030
  3. QUETIAPINE [Concomitant]
  4. NITRAZEPAM [Concomitant]

REACTIONS (5)
  - BLOOD PRESSURE SYSTOLIC INCREASED [None]
  - DRUG INTERACTION [None]
  - DRUG TOXICITY [None]
  - MULTIPLE DRUG OVERDOSE [None]
  - SPASMODIC DYSPHONIA [None]
